FAERS Safety Report 14236716 (Version 1)
Quarter: 2017Q4

REPORT INFORMATION
  Report Type: Spontaneous
  Country: US (occurrence: US)
  Receive Date: 20171129
  Receipt Date: 20171129
  Transmission Date: 20180321
  Serious: No
  Sender: FDA-Public Use
  Company Number: US-009507513-1711USA006091

PATIENT
  Age: 5 Year
  Sex: Male

DRUGS (8)
  1. NAPROXEN. [Concomitant]
     Active Substance: NAPROXEN
     Indication: MEDIASTINITIS
     Dosage: 10 MG/KG, BID
  2. NAPROXEN. [Concomitant]
     Active Substance: NAPROXEN
     Indication: HISTOPLASMOSIS
  3. PREDNISONE. [Concomitant]
     Active Substance: PREDNISONE
     Indication: MEDIASTINITIS
     Dosage: 1 MG/KG, QD
  4. AMPHOTERICIN B. [Concomitant]
     Active Substance: AMPHOTERICIN B
     Indication: MEDIASTINITIS
     Dosage: 5 MG/KG, QD; LIPOSOMAL
     Route: 042
  5. NOXAFIL [Suspect]
     Active Substance: POSACONAZOLE
     Indication: HISTOPLASMOSIS
  6. PREDNISONE. [Concomitant]
     Active Substance: PREDNISONE
     Indication: HISTOPLASMOSIS
  7. NOXAFIL [Suspect]
     Active Substance: POSACONAZOLE
     Indication: MEDIASTINITIS
     Dosage: 15 MG/KG, QD
     Route: 048
  8. AMPHOTERICIN B. [Concomitant]
     Active Substance: AMPHOTERICIN B
     Indication: HISTOPLASMOSIS

REACTIONS (1)
  - Off label use [Unknown]
